FAERS Safety Report 17352832 (Version 1)
Quarter: 2020Q1

REPORT INFORMATION
  Report Type: Spontaneous
  Country: US (occurrence: US)
  Receive Date: 20200131
  Receipt Date: 20200131
  Transmission Date: 20200409
  Serious: Yes (Hospitalization, Other)
  Sender: FDA-Public Use
  Company Number: US-009507513-2001USA009922

PATIENT
  Age: 23 Year
  Sex: Male

DRUGS (13)
  1. SEROQUEL [Concomitant]
     Active Substance: QUETIAPINE FUMARATE
  2. DANTROLENE. [Concomitant]
     Active Substance: DANTROLENE SODIUM
  3. NOXAFIL [Suspect]
     Active Substance: POSACONAZOLE
     Indication: COCCIDIOIDOMYCOSIS
     Dosage: 10 MILLILITER, THREE TIMES DAILY
     Route: 048
     Dates: end: 201804
  4. NOXAFIL [Suspect]
     Active Substance: POSACONAZOLE
     Dosage: 10 MILLILITRE, THREE TIMES DAILY
     Route: 048
     Dates: end: 201910
  5. FLUOXETINE [Concomitant]
     Active Substance: FLUOXETINE HYDROCHLORIDE
  6. SENNA [Concomitant]
     Active Substance: SENNA LEAF\SENNOSIDES\SENNOSIDES A AND B
  7. CLONAZEPAM. [Concomitant]
     Active Substance: CLONAZEPAM
  8. KEPPRA [Concomitant]
     Active Substance: LEVETIRACETAM
  9. REMERON [Concomitant]
     Active Substance: MIRTAZAPINE
  10. LEVOTHYROXINE SODIUM. [Concomitant]
     Active Substance: LEVOTHYROXINE SODIUM
  11. ASPIRIN. [Concomitant]
     Active Substance: ASPIRIN
  12. NOXAFIL [Suspect]
     Active Substance: POSACONAZOLE
     Dosage: 10 MILLILITRE, THREE TIMES DAILY
     Route: 048
  13. LAMICTAL [Concomitant]
     Active Substance: LAMOTRIGINE

REACTIONS (7)
  - Coccidioidomycosis [Not Recovered/Not Resolved]
  - Seizure [Not Recovered/Not Resolved]
  - Feeling abnormal [Not Recovered/Not Resolved]
  - Hypothyroidism [Not Recovered/Not Resolved]
  - Brain abscess [Not Recovered/Not Resolved]
  - Product dose omission [Unknown]
  - Constipation [Not Recovered/Not Resolved]

NARRATIVE: CASE EVENT DATE: 20180427
